FAERS Safety Report 11256118 (Version 1)
Quarter: 2015Q3

REPORT INFORMATION
  Report Type: Spontaneous
  Country: US (occurrence: US)
  Receive Date: 20150709
  Receipt Date: 20150709
  Transmission Date: 20151125
  Serious: Yes (Hospitalization)
  Sender: FDA-Public Use
  Company Number: US-MPIJNJ-2012-06235

PATIENT
  Age: 72 Year
  Sex: Male

DRUGS (2)
  1. VELCADE [Suspect]
     Active Substance: BORTEZOMIB
     Indication: MANTLE CELL LYMPHOMA
     Dosage: 1.3 MG/M2, CYCLIC
     Route: 058
     Dates: start: 20120704, end: 20120813
  2. RITUXAN [Suspect]
     Active Substance: RITUXIMAB
     Indication: MANTLE CELL LYMPHOMA
     Dosage: 750 MG, UNK
     Route: 042
     Dates: start: 20120719, end: 20120813

REACTIONS (3)
  - Oxygen saturation decreased [Recovering/Resolving]
  - Thrombocytopenia [Unknown]
  - Dyspnoea [Recovering/Resolving]

NARRATIVE: CASE EVENT DATE: 20120804
